FAERS Safety Report 25279427 (Version 1)
Quarter: 2025Q2

REPORT INFORMATION
  Report Type: Spontaneous
  Country: US (occurrence: None)
  Receive Date: 20250507
  Receipt Date: 20250507
  Transmission Date: 20250716
  Serious: Yes (Hospitalization)
  Sender: FDA-CTU
  Company Number: None

PATIENT
  Age: 58 Year
  Sex: Male
  Weight: 108.86 kg

DRUGS (1)
  1. METHYLCOBALAMIN\NADIDE\TIRZEPATIDE [Suspect]
     Active Substance: METHYLCOBALAMIN\NADIDE\TIRZEPATIDE
     Indication: Weight decreased
     Route: 058
     Dates: start: 20250418, end: 20250418

REACTIONS (4)
  - Nonspecific reaction [None]
  - Tension headache [None]
  - Urticaria [None]
  - Hypotension [None]

NARRATIVE: CASE EVENT DATE: 20250418
